FAERS Safety Report 14430399 (Version 1)
Quarter: 2018Q1

REPORT INFORMATION
  Report Type: Spontaneous
  Country: US (occurrence: US)
  Receive Date: 20180123
  Receipt Date: 20180123
  Transmission Date: 20180509
  Serious: No
  Sender: FDA-Public Use
  Company Number: None

PATIENT
  Age: 67 Year
  Sex: Female

DRUGS (11)
  1. ESCITALOPRAM [Concomitant]
     Active Substance: ESCITALOPRAM OXALATE
  2. ESTRADIOL. [Concomitant]
     Active Substance: ESTRADIOL
  3. ELIQUIS [Concomitant]
     Active Substance: APIXABAN
  4. OCALIVA [Suspect]
     Active Substance: OBETICHOLIC ACID
     Indication: PRIMARY BILIARY CHOLANGITIS
     Route: 048
     Dates: start: 20180109
  5. AMITIZA [Concomitant]
     Active Substance: LUBIPROSTONE
  6. PROPAFENONE. [Concomitant]
     Active Substance: PROPAFENONE
  7. PILOCARPINE. [Concomitant]
     Active Substance: PILOCARPINE
  8. LACTULOSE. [Concomitant]
     Active Substance: LACTULOSE
  9. ONDANSETRON [Concomitant]
     Active Substance: ONDANSETRON
  10. POTASSIUM CHLORIDE. [Concomitant]
     Active Substance: POTASSIUM CHLORIDE
  11. CARTIA XT [Concomitant]
     Active Substance: DILTIAZEM HYDROCHLORIDE

REACTIONS (2)
  - Rash pruritic [None]
  - Pruritus [None]

NARRATIVE: CASE EVENT DATE: 20180122
